FAERS Safety Report 7040791-7 (Version None)
Quarter: 2010Q4

REPORT INFORMATION
  Report Type: 
  Country: None (occurrence: None)
  Receive Date: 20101013
  Receipt Date: 20101006
  Transmission Date: 20110411
  Serious: No
  Sender: FDA-Public Use
  Company Number: US-BIOGENIDEC-2010BI034661

PATIENT
  Sex: Female

DRUGS (2)
  1. AVONEX [Suspect]
     Indication: MULTIPLE SCLEROSIS
     Route: 030
     Dates: start: 20050701
  2. AVONEX [Suspect]
     Route: 030

REACTIONS (3)
  - GENERAL SYMPTOM [None]
  - INFLUENZA LIKE ILLNESS [None]
  - PARAESTHESIA [None]
